FAERS Safety Report 15643168 (Version 4)
Quarter: 2018Q4

REPORT INFORMATION
  Report Type: Spontaneous
  Country: DE (occurrence: DE)
  Receive Date: 20181121
  Receipt Date: 20181211
  Transmission Date: 20190205
  Serious: Yes (Other)
  Sender: FDA-Public Use
  Company Number: PHHY2018DE157835

PATIENT
  Age: 62 Year
  Sex: Female
  Weight: 64 kg

DRUGS (4)
  1. TOCILIZUMAB. [Suspect]
     Active Substance: TOCILIZUMAB
     Indication: VASCULITIS
  2. PREDNISOLONE. [Suspect]
     Active Substance: PREDNISOLONE
     Indication: VASCULITIS
     Dosage: 5 MG, QD
     Route: 065
  3. PREDNISOLONE. [Suspect]
     Active Substance: PREDNISOLONE
     Indication: TEMPORAL ARTERITIS
     Dosage: 7.5 MG, QD (AT FOLLOW-UP)
     Route: 065
  4. TOCILIZUMAB. [Suspect]
     Active Substance: TOCILIZUMAB
     Indication: VASCULITIS
     Dosage: 162 MG, QW
     Route: 058

REACTIONS (3)
  - Aortic aneurysm [Unknown]
  - Product use in unapproved indication [Unknown]
  - Cellulitis [Unknown]
